FAERS Safety Report 5384123-9 (Version None)
Quarter: 2007Q3

REPORT INFORMATION
  Report Type: 
  Country: None (occurrence: None)
  Receive Date: 20070711
  Receipt Date: 20070702
  Transmission Date: 20080115
  Serious: Yes (Congenital Anomaly)
  Sender: FDA-Public Use
  Company Number: FR-ABBOTT-07P-056-0373356-00

PATIENT
  Age: 1 Day
  Sex: Male
  Weight: 3.9 kg

DRUGS (1)
  1. DEPAKENE [Suspect]
     Indication: DRUG EXPOSURE DURING PREGNANCY
     Route: 064

REACTIONS (6)
  - CONGENITAL BLADDER ANOMALY [None]
  - HYDRONEPHROSIS [None]
  - HYPOTONIA NEONATAL [None]
  - INGUINAL HERNIA [None]
  - PSYCHOMOTOR SKILLS IMPAIRED [None]
  - PYLORIC STENOSIS [None]
